FAERS Safety Report 12305974 (Version 17)
Quarter: 2017Q3

REPORT INFORMATION
  Report Type: Report from Study
  Country: DE (occurrence: DE)
  Receive Date: 20160426
  Receipt Date: 20170721
  Transmission Date: 20171127
  Serious: Yes (Hospitalization, Other)
  Sender: FDA-Public Use
  Company Number: DE-SA-2016SA066616

PATIENT
  Age: 43 Year
  Sex: Female
  Weight: 74 kg

DRUGS (12)
  1. ACICLOVIR [Concomitant]
     Active Substance: ACYCLOVIR
     Indication: PROPHYLAXIS
     Dosage: 1-0-1
     Route: 065
  2. BACLOFEN. [Concomitant]
     Active Substance: BACLOFEN
     Indication: MUSCLE SPASTICITY
     Route: 048
     Dates: start: 2010
  3. LEMTRADA [Suspect]
     Active Substance: ALEMTUZUMAB
     Indication: MULTIPLE SCLEROSIS
     Route: 041
     Dates: start: 20150218, end: 20150220
  4. BACLOFEN. [Concomitant]
     Active Substance: BACLOFEN
     Indication: MUSCLE SPASTICITY
     Dosage: 1/2-0-1/2
     Route: 048
     Dates: start: 2012
  5. MAGNESIUM [Concomitant]
     Active Substance: MAGNESIUM
     Indication: MUSCLE SPASMS
     Dosage: FREQUENCY: 1/2-1/2-0
     Route: 048
     Dates: start: 20120101
  6. VITAVERLAN [Concomitant]
     Route: 048
  7. DEKRISTOL [Concomitant]
     Active Substance: CHOLECALCIFEROL
     Indication: VITAMIN D DEFICIENCY
     Dosage: 1-0-0
     Route: 048
     Dates: start: 20140101
  8. DEKRISTOL [Concomitant]
     Active Substance: CHOLECALCIFEROL
     Indication: VITAMIN D DEFICIENCY
     Route: 048
     Dates: start: 2013
  9. BACLOFEN. [Concomitant]
     Active Substance: BACLOFEN
     Indication: MUSCLE SPASTICITY
     Dosage: 1/2-1/2-0
     Route: 048
     Dates: start: 20100101
  10. MAGNESIUM [Concomitant]
     Active Substance: MAGNESIUM
     Indication: MUSCLE SPASMS
     Dosage: 1-1-0
     Route: 048
  11. LEMTRADA [Suspect]
     Active Substance: ALEMTUZUMAB
     Indication: MULTIPLE SCLEROSIS
     Route: 041
     Dates: start: 20140217, end: 20140221
  12. MAGNESIUM [Concomitant]
     Active Substance: MAGNESIUM
     Indication: MUSCLE SPASMS
     Route: 048
     Dates: start: 2010

REACTIONS (14)
  - Thrombocytopenia [Recovered/Resolved]
  - Immune thrombocytopenic purpura [Not Recovered/Not Resolved]
  - Influenza [Recovered/Resolved]
  - Dyspnoea [Recovered/Resolved]
  - Foot fracture [Not Recovered/Not Resolved]
  - Abdominal pain [Not Recovered/Not Resolved]
  - Hypothyroidism [Not Recovered/Not Resolved]
  - Sneezing [Recovered/Resolved]
  - Colitis [Not Recovered/Not Resolved]
  - Gait disturbance [Recovering/Resolving]
  - Multiple sclerosis relapse [Recovering/Resolving]
  - Asthenia [Recovering/Resolving]
  - Cough [Recovered/Resolved]
  - Nasopharyngitis [Not Recovered/Not Resolved]

NARRATIVE: CASE EVENT DATE: 20150219
